FAERS Safety Report 9783194 (Version 3)
Quarter: 2014Q1

REPORT INFORMATION
  Report Type: Spontaneous
  Country: FR (occurrence: None)
  Receive Date: 20131223
  Receipt Date: 20140226
  Transmission Date: 20141002
  Serious: Yes (Life-Threatening, Other)
  Sender: FDA-Public Use
  Company Number: 2013FR0490

PATIENT
  Sex: Male

DRUGS (1)
  1. ORFADIN [Suspect]
     Route: 064

REACTIONS (9)
  - Respiratory distress [None]
  - Neonatal anoxia [None]
  - Tyrosinaemia [None]
  - Amino acid level increased [None]
  - Foetal exposure during pregnancy [None]
  - Apgar score low [None]
  - Rhinorrhoea [None]
  - Maternal drugs affecting foetus [None]
  - Neonatal respiratory distress syndrome [None]
